FAERS Safety Report 6071048-9 (Version None)
Quarter: 2009Q1

REPORT INFORMATION
  Report Type: 
  Country: None (occurrence: None)
  Receive Date: 20090209
  Receipt Date: 20080910
  Transmission Date: 20090719
  Serious: No
  Sender: FDA-Public Use
  Company Number: A0697299A

PATIENT
  Age: 63 Year
  Sex: Female

DRUGS (5)
  1. PAXIL CR [Suspect]
     Indication: BIPOLAR DISORDER
     Dosage: 25MG PER DAY
     Route: 048
     Dates: start: 20060301, end: 20071101
  2. PAXIL [Suspect]
     Indication: MAJOR DEPRESSION
     Dosage: 12.5MG PER DAY
     Route: 048
     Dates: start: 20080101
  3. TRAZODONE HCL [Concomitant]
  4. ENALAPRIL [Concomitant]
  5. LEVOTHYROXINE SODIUM [Concomitant]

REACTIONS (9)
  - ABNORMAL DREAMS [None]
  - AMNESIA [None]
  - DRUG INTERACTION [None]
  - FATIGUE [None]
  - HYPERHIDROSIS [None]
  - HYPOACUSIS [None]
  - MUSCULOSKELETAL STIFFNESS [None]
  - PAIN [None]
  - WEIGHT INCREASED [None]
